FAERS Safety Report 9121258 (Version 5)
Quarter: 2013Q4

REPORT INFORMATION
  Report Type: Report from Study
  Country: JP (occurrence: JP)
  Receive Date: 20130225
  Receipt Date: 20131220
  Transmission Date: 20140711
  Serious: Yes (Hospitalization, Other)
  Sender: FDA-Public Use
  Company Number: JP-PFIZER INC-2013065498

PATIENT
  Age: 47 Year
  Sex: Female
  Weight: 50 kg

DRUGS (5)
  1. XALKORI [Suspect]
     Indication: NON-SMALL CELL LUNG CANCER
     Dosage: 250 MG, 2X/DAY
     Route: 048
     Dates: start: 20130207, end: 20130217
  2. PRIMPERAN [Concomitant]
     Dosage: 5 MG, 3X/DAY
     Route: 048
     Dates: start: 20130207, end: 20130220
  3. MUCOSTA [Concomitant]
     Dosage: 100 MG, 3X/DAY
     Route: 048
     Dates: start: 20130207, end: 20130220
  4. LOPEMIN [Concomitant]
     Dosage: 1 MG, AS NEEDED
     Route: 048
     Dates: start: 20130208, end: 20130210
  5. LOXOPROFEN [Concomitant]
     Dosage: 60 MG, AS NEEDED
     Route: 048
     Dates: start: 20130212, end: 20130213

REACTIONS (2)
  - Erythema multiforme [Recovered/Resolved]
  - Eosinophil count increased [Recovered/Resolved]
